FAERS Safety Report 11938372 (Version 1)
Quarter: 2016Q1

REPORT INFORMATION
  Report Type: Spontaneous
  Country: None (occurrence: None)
  Receive Date: 20160121
  Receipt Date: 20160121
  Transmission Date: 20160526
  Serious: No
  Sender: FDA-Public Use
  Company Number: None

PATIENT
  Age: 37 Year
  Sex: Male
  Weight: 68.04 kg

DRUGS (1)
  1. ZOLPIDEM [Suspect]
     Active Substance: ZOLPIDEM\ZOLPIDEM TARTRATE
     Indication: INSOMNIA
     Dosage: 1 PILL, AS NEEDED, TAKEN BY MOUTH

REACTIONS (4)
  - Product quality issue [None]
  - Abdominal discomfort [None]
  - Anxiety [None]
  - Nausea [None]

NARRATIVE: CASE EVENT DATE: 20151216
